FAERS Safety Report 15928872 (Version 1)
Quarter: 2019Q1

REPORT INFORMATION
  Report Type: Spontaneous
  Country: DE (occurrence: DE)
  Receive Date: 20190206
  Receipt Date: 20190206
  Transmission Date: 20190417
  Serious: Yes (Hospitalization, Other)
  Sender: FDA-Public Use
  Company Number: DE-BIOCODEX SA-201801678

PATIENT
  Sex: Male

DRUGS (5)
  1. CLOBAZAM. [Suspect]
     Active Substance: CLOBAZAM
     Indication: PRODUCT USED FOR UNKNOWN INDICATION
     Dosage: UNK
  2. VALPROATE [Suspect]
     Active Substance: VALPROIC ACID
     Indication: PRODUCT USED FOR UNKNOWN INDICATION
     Dosage: UNK
     Route: 048
     Dates: start: 20180901
  3. DIACOMIT [Suspect]
     Active Substance: STIRIPENTOL
     Indication: SEVERE MYOCLONIC EPILEPSY OF INFANCY
     Dosage: UNK
     Route: 048
     Dates: end: 20180901
  4. DIACOMIT [Suspect]
     Active Substance: STIRIPENTOL
     Dosage: 46 MG/KG, QD
     Route: 048
     Dates: start: 20180901
  5. DIACOMIT [Suspect]
     Active Substance: STIRIPENTOL
     Dosage: 18 MG/KG, QD
     Route: 048

REACTIONS (4)
  - Bradycardia [Recovered/Resolved]
  - Rash [Unknown]
  - Product use in unapproved indication [Recovered/Resolved]
  - Epilepsy [Recovered/Resolved]
